FAERS Safety Report 4892927-1 (Version None)
Quarter: 2005Q4

REPORT INFORMATION
  Report Type: 
  Country: None (occurrence: None)
  Receive Date: 20051223
  Receipt Date: 20050217
  Transmission Date: 20060501
  Serious: Yes (Other)
  Sender: FDA-Public Use
  Company Number: PHEH2005US01913

PATIENT
  Age: 50 Year
  Sex: Male
  Weight: 294 kg

DRUGS (7)
  1. CLOZARIL [Suspect]
     Indication: SCHIZOPHRENIA
     Dosage: 100 MG BID + 150MG Q MID-DAY, ORAL
     Route: 048
     Dates: start: 19930101
  2. EFFEXOR [Concomitant]
  3. BENZTROPINE MESYLATE [Concomitant]
  4. ZETIA [Concomitant]
  5. ACCUPRIL [Concomitant]
  6. NEXIUM [Concomitant]
  7. DURAGESIC-100 [Concomitant]

REACTIONS (8)
  - CHEST PAIN [None]
  - DIABETES MELLITUS [None]
  - DILATATION ATRIAL [None]
  - DYSPNOEA EXERTIONAL [None]
  - PERICARDIAL EFFUSION [None]
  - PERICARDITIS [None]
  - PLEURAL EFFUSION [None]
  - WEIGHT INCREASED [None]
